FAERS Safety Report 6641137-6 (Version None)
Quarter: 2010Q1

REPORT INFORMATION
  Report Type: 
  Country: None (occurrence: None)
  Receive Date: 20100318
  Receipt Date: 20090302
  Transmission Date: 20100710
  Serious: No
  Sender: FDA-Public Use
  Company Number: US-ASTRAZENECA-2009UW05617

PATIENT
  Sex: Female
  Weight: 64.4 kg

DRUGS (3)
  1. ZESTRIL [Suspect]
     Route: 048
  2. ZYRTEC [Concomitant]
  3. PREDNISONE [Concomitant]
     Indication: HYPERSENSITIVITY

REACTIONS (3)
  - BLOOD PRESSURE INCREASED [None]
  - HEADACHE [None]
  - NAUSEA [None]
